FAERS Safety Report 4959631-2 (Version None)
Quarter: 2006Q1

REPORT INFORMATION
  Report Type: 
  Country: None (occurrence: None)
  Receive Date: 20060331
  Receipt Date: 20051116
  Transmission Date: 20060701
  Serious: Yes (Other)
  Sender: FDA-Public Use
  Company Number: US-ROCHE-425310

PATIENT
  Age: 41 Year
  Sex: Female
  Weight: 56.7 kg

DRUGS (12)
  1. PEGASYS [Suspect]
     Route: 058
     Dates: start: 20050907, end: 20051114
  2. PEGASYS [Suspect]
     Route: 058
     Dates: end: 20060217
  3. COPEGUS [Suspect]
     Route: 048
     Dates: start: 20050907
  4. COPEGUS [Suspect]
     Route: 048
     Dates: end: 20051114
  5. COPEGUS [Suspect]
     Route: 048
     Dates: end: 20060217
  6. KLONOPIN [Concomitant]
     Route: 048
  7. LEXAPRO [Concomitant]
     Indication: DEPRESSION
     Route: 048
  8. TRAZODONE HCL [Concomitant]
     Indication: DEPRESSION
     Dosage: ADMINISTERED AT BEDTIME
     Route: 048
  9. LIPITOR [Concomitant]
     Dosage: ADMINISTERED DAILY
     Route: 048
  10. HYDROCHLOROTHIAZIDE [Concomitant]
     Indication: ARTHRITIS
     Dosage: ADMINISTERED DAILY
     Route: 048
     Dates: end: 20051115
  11. ASPIRIN [Concomitant]
     Route: 048
  12. PERCOCET [Concomitant]
     Route: 048

REACTIONS (12)
  - ALOPECIA [None]
  - ARTHRALGIA [None]
  - DEHYDRATION [None]
  - DIARRHOEA [None]
  - DRY SKIN [None]
  - GRAND MAL CONVULSION [None]
  - HEADACHE [None]
  - INFLUENZA LIKE ILLNESS [None]
  - NAUSEA [None]
  - STOMACH DISCOMFORT [None]
  - VOMITING [None]
  - WEIGHT DECREASED [None]
